FAERS Safety Report 5767213-8 (Version None)
Quarter: 2008Q2

REPORT INFORMATION
  Report Type: 
  Country: None (occurrence: None)
  Receive Date: 20080606
  Receipt Date: 20080521
  Transmission Date: 20081010
  Serious: Yes (Hospitalization)
  Sender: FDA-Public Use
  Company Number: 2008BI006568

PATIENT
  Age: 32 Year
  Sex: Female

DRUGS (8)
  1. TYSABRI [Suspect]
     Indication: RELAPSING-REMITTING MULTIPLE SCLEROSIS
     Dosage: 300 MG; IV
     Route: 042
     Dates: start: 20070920
  2. EFFEXOR [Concomitant]
  3. ZYPREXA [Concomitant]
  4. VALIUM [Concomitant]
  5. MULTI-VITAMIN [Concomitant]
  6. FLAX SEED OIL [Concomitant]
  7. FISH OIL [Concomitant]
  8. CRANBERRY TABLETS [Concomitant]

REACTIONS (3)
  - ANXIETY [None]
  - DEPRESSION [None]
  - SELF-INJURIOUS IDEATION [None]
